FAERS Safety Report 17969716 (Version 1)
Quarter: 2020Q3

REPORT INFORMATION
  Report Type: Spontaneous
  Country: US (occurrence: US)
  Receive Date: 20200701
  Receipt Date: 20200701
  Transmission Date: 20201103
  Serious: Yes (Other)
  Sender: FDA-Public Use
  Company Number: US-AMERICAN REGENT INC-2020001314

PATIENT
  Age: 81 Year
  Sex: Female

DRUGS (1)
  1. FUROSEMIDE INJECTION, USP (5702?25) [Suspect]
     Active Substance: FUROSEMIDE
     Indication: POLYURIA
     Dosage: UNK
     Route: 042
     Dates: start: 2012

REACTIONS (1)
  - Metabolic alkalosis [Unknown]

NARRATIVE: CASE EVENT DATE: 2012
